FAERS Safety Report 9470771 (Version 3)
Quarter: 2015Q2

REPORT INFORMATION
  Report Type: Spontaneous
  Country: US (occurrence: US)
  Receive Date: 20130822
  Receipt Date: 20150612
  Transmission Date: 20150821
  Serious: Yes (Hospitalization, Congenital Anomaly, Other)
  Sender: FDA-Public Use
  Company Number: US-ELI_LILLY_AND_COMPANY-US201308005419

PATIENT
  Age: 0 Day

DRUGS (3)
  1. PROZAC [Suspect]
     Active Substance: FLUOXETINE HYDROCHLORIDE
     Indication: DEPRESSION
     Dosage: 40 MG, QD
     Route: 064
  2. CLONOPIN [Concomitant]
     Active Substance: CLONAZEPAM
     Dosage: UNK UNK, UNKNOWN
     Route: 064
  3. PRENATAL VITAMINS                  /07499601/ [Concomitant]
     Active Substance: VITAMINS
     Dosage: UNK, UNKNOWN
     Route: 064

REACTIONS (11)
  - Autism [Unknown]
  - Cerebral palsy [Unknown]
  - Rib deformity [Unknown]
  - Premature baby [Unknown]
  - Congenital central nervous system anomaly [Unknown]
  - Cytogenetic abnormality [Unknown]
  - Congenital scoliosis [Unknown]
  - Cardiomegaly [Unknown]
  - Foetal exposure during pregnancy [Unknown]
  - Atrial septal defect [Unknown]
  - Hemivertebra [Unknown]

NARRATIVE: CASE EVENT DATE: 20041101
